FAERS Safety Report 11611029 (Version 1)
Quarter: 2015Q4

REPORT INFORMATION
  Report Type: Spontaneous
  Country: US (occurrence: None)
  Receive Date: 20151007
  Receipt Date: 20151007
  Transmission Date: 20160304
  Serious: Yes (Life-Threatening, Hospitalization)
  Sender: FDA-Public Use
  Company Number: None

PATIENT
  Age: 55 Year
  Sex: Male
  Weight: 84.7 kg

DRUGS (1)
  1. CEFTAROLINE [Suspect]
     Active Substance: CEFTAROLINE
     Route: 042
     Dates: start: 20150609, end: 20150610

REACTIONS (3)
  - Neutropenia [None]
  - Leukopenia [None]
  - Pneumonia [None]

NARRATIVE: CASE EVENT DATE: 20150610
